FAERS Safety Report 5258098-7 (Version None)
Quarter: 2007Q1

REPORT INFORMATION
  Report Type: 
  Country: None (occurrence: None)
  Receive Date: 20070307
  Receipt Date: 20070223
  Transmission Date: 20070707
  Serious: Yes (Hospitalization, Other)
  Sender: FDA-Public Use
  Company Number: GB-PFIZER INC-2006125395

PATIENT
  Age: 43 Year
  Sex: Male

DRUGS (9)
  1. PREDNISOLONE [Suspect]
     Indication: BURKITT'S LYMPHOMA
  2. HYDROCORTISONE [Suspect]
     Indication: BURKITT'S LYMPHOMA
  3. CYCLOPHOSPHAMIDE [Concomitant]
  4. CYTOSINE ARABINOSIDE [Concomitant]
  5. DOXORUBICIN HCL [Concomitant]
  6. METHOTREXATE [Concomitant]
  7. RITONAVIR [Concomitant]
  8. SAQUINAVIR [Concomitant]
  9. VINCRISTINE [Concomitant]

REACTIONS (5)
  - BACK PAIN [None]
  - COMPRESSION FRACTURE [None]
  - OSTEONECROSIS [None]
  - OSTEOPOROSIS [None]
  - PAIN IN EXTREMITY [None]
